FAERS Safety Report 4358499-5 (Version None)
Quarter: 2004Q2

REPORT INFORMATION
  Report Type: 
  Country: None (occurrence: None)
  Receive Date: 20040514
  Receipt Date: 20040504
  Transmission Date: 20050107
  Serious: Yes (Death, Life-Threatening, Other)
  Sender: FDA-Public Use
  Company Number: US-GLAXOSMITHKLINE-A0509647A

PATIENT
  Age: 57 Year
  Sex: Male

DRUGS (4)
  1. ADVAIR DISKUS 100/50 [Suspect]
     Indication: DRUG USE FOR UNKNOWN INDICATION
     Route: 055
  2. ZITHROMAX [Concomitant]
  3. BETA BLOCKER [Concomitant]
  4. TUSSIN COUGH MEDICINE [Concomitant]

REACTIONS (1)
  - DEATH [None]
